FAERS Safety Report 4692938-5 (Version None)
Quarter: 2005Q2

REPORT INFORMATION
  Report Type: 
  Country: None (occurrence: None)
  Receive Date: 20050615
  Receipt Date: 20050607
  Transmission Date: 20051028
  Serious: No
  Sender: FDA-Public Use
  Company Number: US-GDP-0512015

PATIENT
  Age: 60 Year
  Sex: Female

DRUGS (1)
  1. METROGEL [Suspect]
     Indication: ROSACEA
     Dates: start: 19970101, end: 20050501

REACTIONS (1)
  - NEUROPATHY PERIPHERAL [None]
